FAERS Safety Report 9651038 (Version 1)
Quarter: 2013Q4

REPORT INFORMATION
  Report Type: Spontaneous
  Country: FR (occurrence: FR)
  Receive Date: 20131029
  Receipt Date: 20131029
  Transmission Date: 20140711
  Serious: Yes (Other)
  Sender: FDA-Public Use
  Company Number: PHHY2013FR120633

PATIENT
  Sex: Female

DRUGS (1)
  1. ACLASTA [Suspect]
     Indication: OSTEOPOROSIS
     Dosage: 5 MG, UNK
     Route: 042
     Dates: start: 20131014

REACTIONS (10)
  - Eyelid ptosis [Unknown]
  - Blepharitis [Unknown]
  - Eyelid oedema [Unknown]
  - Conjunctivitis [Unknown]
  - Lacrimation increased [Unknown]
  - Vision blurred [Unknown]
  - Photophobia [Unknown]
  - Eye irritation [Unknown]
  - Eye pruritus [Unknown]
  - Ocular hyperaemia [Unknown]
